FAERS Safety Report 8186693-4 (Version None)
Quarter: 2012Q1

REPORT INFORMATION
  Report Type: 
  Country: None (occurrence: None)
  Receive Date: 20120306
  Receipt Date: 20120228
  Transmission Date: 20120608
  Serious: Yes (Death)
  Sender: FDA-Public Use
  Company Number: FR-PFIZER INC-2012058324

PATIENT
  Age: 95 Year
  Sex: Female

DRUGS (11)
  1. LOVENOX [Concomitant]
     Indication: PROPHYLAXIS
     Dosage: UNK
     Dates: end: 20120119
  2. CORDARONE [Concomitant]
  3. RAMIPRIL [Concomitant]
  4. ROCEPHIN [Concomitant]
     Indication: PNEUMONIA
     Dosage: UNK
     Dates: start: 20120124, end: 20120130
  5. LASIX [Concomitant]
     Indication: RENAL FAILURE
  6. COUMADIN [Concomitant]
     Dosage: UNK
  7. CALCIPARINE [Concomitant]
     Indication: RENAL FAILURE
     Dosage: UNK
     Dates: start: 20120119, end: 20120131
  8. GENTAMICIN [Concomitant]
     Indication: PNEUMONIA
     Dosage: UNK
     Dates: start: 20120124, end: 20120124
  9. ARGATROBAN [Suspect]
     Indication: HEPARIN-INDUCED THROMBOCYTOPENIA
     Dosage: TARGET DOSAGE AROUND 1 UG/L (1 IN 1 D)
     Route: 042
     Dates: start: 20120201, end: 20120212
  10. BISOPROLOL FUMARATE [Concomitant]
  11. PIPERACILLIN AND TAZOBACTAM [Concomitant]
     Indication: PNEUMONIA
     Dosage: UNK
     Dates: start: 20120130

REACTIONS (1)
  - GASTROINTESTINAL HAEMORRHAGE [None]
